FAERS Safety Report 11423109 (Version 2)
Quarter: 2016Q1

REPORT INFORMATION
  Report Type: Spontaneous
  Country: JP (occurrence: JP)
  Receive Date: 20150827
  Receipt Date: 20160221
  Transmission Date: 20160525
  Serious: Yes (Other)
  Sender: FDA-Public Use
  Company Number: JP-TEVA-588531ISR

PATIENT
  Age: 69 Year
  Sex: Male
  Weight: 43 kg

DRUGS (23)
  1. E-FEN BUCCAL [Suspect]
     Active Substance: FENTANYL CITRATE
     Indication: BREAKTHROUGH PAIN
     Route: 002
     Dates: start: 20141204, end: 20141204
  2. ENSURE [Concomitant]
     Active Substance: AMINO ACIDS\DEXTROSE\ELECTROLYTES NOS\SOYBEAN OIL\VITAMINS
     Dosage: 1 DOSAGE FORMS DAILY;
     Route: 048
     Dates: start: 20150107, end: 20150204
  3. SOLDANA [Concomitant]
     Dosage: 12 MILLIGRAM DAILY;
     Route: 048
     Dates: end: 20150204
  4. ENSURE H [Concomitant]
     Indication: CONSTIPATION
     Route: 048
     Dates: start: 20141216, end: 20150106
  5. LENDORMIN D [Concomitant]
     Active Substance: BROTIZOLAM
     Indication: SCHIZOPHRENIA
     Dosage: .25 MILLIGRAM DAILY;
     Route: 048
     Dates: start: 20141216, end: 20150204
  6. LASIX [Concomitant]
     Active Substance: FUROSEMIDE
     Indication: OEDEMA
     Dosage: 40 MILLIGRAM DAILY;
     Route: 048
     Dates: start: 20141210, end: 20150204
  7. E-FEN BUCCAL [Suspect]
     Active Substance: FENTANYL CITRATE
     Route: 002
     Dates: start: 20141219, end: 20150118
  8. PACIF [Suspect]
     Active Substance: MORPHINE HYDROCHLORIDE
     Indication: CANCER PAIN
     Dosage: 30 MILLIGRAM DAILY;
     Route: 048
     Dates: end: 20150119
  9. CELECOX [Concomitant]
     Active Substance: CELECOXIB
     Indication: CANCER PAIN
     Dosage: 200 MILLIGRAM DAILY;
     Route: 048
     Dates: end: 20150204
  10. RINDERON V [Concomitant]
     Active Substance: BETAMETHASONE VALERATE
     Indication: BACK PAIN
     Dosage: .5 MILLIGRAM DAILY;
     Route: 048
     Dates: start: 20141225, end: 20150204
  11. GEMZAR [Concomitant]
     Active Substance: GEMCITABINE HYDROCHLORIDE
     Indication: CHEMOTHERAPY
     Route: 065
     Dates: start: 20150114, end: 20150210
  12. E-FEN BUCCAL [Suspect]
     Active Substance: FENTANYL CITRATE
     Route: 002
     Dates: start: 20141208, end: 20141211
  13. LULLAN [Suspect]
     Active Substance: PEROSPIRONE HYDROCHLORIDE
     Indication: SCHIZOPHRENIA
     Dosage: 4 MILLIGRAM DAILY;
     Route: 048
     Dates: end: 20141224
  14. FENTOS [Suspect]
     Active Substance: FENTANYL
     Indication: CANCER PAIN
     Route: 062
     Dates: start: 20150119, end: 20150204
  15. SOLDANA [Concomitant]
     Route: 048
     Dates: start: 20141211, end: 20150204
  16. OPSO [Concomitant]
     Active Substance: MORPHINE HYDROCHLORIDE
     Indication: BREAKTHROUGH PAIN
     Route: 048
     Dates: start: 20141208
  17. DEPAS [Concomitant]
     Active Substance: ETIZOLAM
     Indication: SCHIZOPHRENIA
     Dosage: 1.5 MILLIGRAM DAILY;
     Route: 048
     Dates: start: 20141229, end: 20150204
  18. JANUVIA [Concomitant]
     Active Substance: SITAGLIPTIN PHOSPHATE
     Indication: DIABETES MELLITUS
     Dosage: 50 MILLIGRAM DAILY;
     Route: 048
     Dates: start: 20150128, end: 20150204
  19. PRIMPERAN [Concomitant]
     Active Substance: METOCLOPRAMIDE HYDROCHLORIDE
     Indication: DECREASED APPETITE
     Dosage: 15 MILLIGRAM DAILY;
     Route: 048
     Dates: end: 20150204
  20. LASIX [Concomitant]
     Active Substance: FUROSEMIDE
     Indication: OEDEMA
     Dosage: 20 MILLIGRAM DAILY;
     Route: 048
     Dates: start: 20150128, end: 20150204
  21. MAGMITT [Concomitant]
     Active Substance: MAGNESIUM OXIDE
     Dosage: 3000 MILLIGRAM DAILY;
     Route: 048
     Dates: start: 20150105, end: 20150204
  22. MAGMITT [Concomitant]
     Active Substance: MAGNESIUM OXIDE
     Indication: CONSTIPATION
     Dosage: 1980 MILLIGRAM DAILY;
     Route: 048
     Dates: end: 20150104
  23. LASIX [Concomitant]
     Active Substance: FUROSEMIDE
     Dosage: 20 MILLIGRAM DAILY;
     Route: 048
     Dates: start: 20150128, end: 20150204

REACTIONS (7)
  - Malaise [Recovered/Resolved]
  - Constipation [Not Recovered/Not Resolved]
  - Somnolence [Recovered/Resolved]
  - Diabetes mellitus [Not Recovered/Not Resolved]
  - Delirium [Recovered/Resolved]
  - Oedema [Not Recovered/Not Resolved]
  - Decreased appetite [Recovered/Resolved]

NARRATIVE: CASE EVENT DATE: 20141208
